FAERS Safety Report 15131289 (Version 3)
Quarter: 2019Q4

REPORT INFORMATION
  Report Type: Spontaneous
  Country: US (occurrence: US)
  Receive Date: 20180711
  Receipt Date: 20191119
  Transmission Date: 20200122
  Serious: Yes (Other)
  Sender: FDA-Public Use
  Company Number: US-ELI_LILLY_AND_COMPANY-US201807002616

PATIENT
  Age: 65 Year
  Sex: Male

DRUGS (9)
  1. TESTOSTERONE. [Concomitant]
     Active Substance: TESTOSTERONE
     Indication: ERECTILE DYSFUNCTION
     Dosage: 115 MG/G (4 CLICKS PER DAY)
     Route: 065
     Dates: start: 2011, end: 2011
  2. CIALIS [Suspect]
     Active Substance: TADALAFIL
     Dosage: UNK, UNKNOWN
     Route: 065
     Dates: start: 20070208, end: 20160915
  3. CIALIS [Suspect]
     Active Substance: TADALAFIL
     Indication: ERECTILE DYSFUNCTION
     Dosage: UNK, UNKNOWN
     Route: 065
     Dates: start: 20050407, end: 200805
  4. VIAGRA [Suspect]
     Active Substance: SILDENAFIL CITRATE
     Indication: ERECTILE DYSFUNCTION
     Dosage: UNK, UNKNOWN
     Route: 065
     Dates: start: 200608, end: 201407
  5. STENDRA [Concomitant]
     Active Substance: AVANAFIL
     Indication: ERECTILE DYSFUNCTION
     Dosage: UNK UNK, DAILY
     Route: 065
     Dates: start: 20140717, end: 201501
  6. ANASTROZOLE. [Concomitant]
     Active Substance: ANASTROZOLE
     Indication: ERECTILE DYSFUNCTION
     Dosage: 0.5 MG, DAILY
     Route: 065
     Dates: start: 2011, end: 2011
  7. FLOMAX [Concomitant]
     Active Substance: TAMSULOSIN HYDROCHLORIDE
     Indication: ERECTILE DYSFUNCTION
     Dosage: 0.4 MG, DAILY
     Route: 065
     Dates: start: 20041004, end: 200411
  8. DHEA [Concomitant]
     Active Substance: PRASTERONE
     Indication: ERECTILE DYSFUNCTION
     Dosage: UNK UNK, DAILY
     Route: 065
     Dates: start: 2011, end: 2011
  9. PREGNENOLONE [Concomitant]
     Active Substance: PREGNENOLONE
     Indication: ERECTILE DYSFUNCTION
     Dosage: UNK UNK, DAILY
     Dates: start: 2011, end: 2011

REACTIONS (22)
  - Basal cell carcinoma [Unknown]
  - Squamous cell carcinoma [Unknown]
  - Bursitis [Unknown]
  - Lumbar spinal stenosis [Unknown]
  - Sleep apnoea syndrome [Not Recovered/Not Resolved]
  - Cataract [Unknown]
  - Hypertension [Recovering/Resolving]
  - Actinic keratosis [Unknown]
  - Diverticulitis [Recovering/Resolving]
  - Lentigo maligna [Unknown]
  - Spinal osteoarthritis [Unknown]
  - Depression [Recovered/Resolved]
  - Glaucoma [Unknown]
  - Blood cholesterol increased [Recovering/Resolving]
  - Bundle branch block right [Unknown]
  - Deep vein thrombosis [Recovering/Resolving]
  - Retinal detachment [Unknown]
  - Atrial fibrillation [Recovering/Resolving]
  - Atrial flutter [Recovering/Resolving]
  - Splenic haemorrhage [Recovered/Resolved]
  - Splenic rupture [Recovered/Resolved]
  - Malignant melanoma in situ [Unknown]

NARRATIVE: CASE EVENT DATE: 2005
